FAERS Safety Report 4446410-8 (Version None)
Quarter: 2004Q3

REPORT INFORMATION
  Report Type: 
  Country: None (occurrence: None)
  Receive Date: 20040903
  Receipt Date: 20040816
  Transmission Date: 20050211
  Serious: Yes (Hospitalization)
  Sender: FDA-Public Use
  Company Number: 6009767

PATIENT
  Sex: Female

DRUGS (1)
  1. EUTHYROX (TABLETS) (LEVOTHYROXINE SODIUM) [Suspect]
     Indication: BASEDOW'S DISEASE
     Dosage: ORAL
     Route: 048

REACTIONS (4)
  - BLOOD THYROID STIMULATING HORMONE INCREASED [None]
  - DRUG INTOLERANCE [None]
  - FATIGUE [None]
  - PANCREATITIS [None]
